FAERS Safety Report 20231828 (Version 2)
Quarter: 2021Q4

REPORT INFORMATION
  Report Type: Spontaneous
  Country: US (occurrence: US)
  Receive Date: 20211227
  Receipt Date: 20211231
  Transmission Date: 20220303
  Serious: Yes (Other)
  Sender: FDA-Public Use
  Company Number: US-NOVARTISPH-NVSC2021US287151

PATIENT
  Sex: Female

DRUGS (3)
  1. XIIDRA [Suspect]
     Active Substance: LIFITEGRAST
     Indication: Dry eye
     Dosage: 1 DRP, QD
     Route: 047
  2. XIIDRA [Suspect]
     Active Substance: LIFITEGRAST
     Indication: Eye inflammation
  3. HYDROXYCHLOROQUINE [Suspect]
     Active Substance: HYDROXYCHLOROQUINE
     Indication: Product used for unknown indication
     Dosage: UNK
     Route: 065

REACTIONS (9)
  - Sjogren^s syndrome [Unknown]
  - Eyelid rash [Unknown]
  - Eyelid irritation [Unknown]
  - Blister [Unknown]
  - Vision blurred [Unknown]
  - Taste disorder [Unknown]
  - Eye inflammation [Unknown]
  - Sensitive skin [Unknown]
  - Eyelid exfoliation [Unknown]
